FAERS Safety Report 8380194-6 (Version None)
Quarter: 2012Q2

REPORT INFORMATION
  Report Type: 
  Country: None (occurrence: None)
  Receive Date: 20120523
  Receipt Date: 20120515
  Transmission Date: 20120825
  Serious: Yes (Other)
  Sender: FDA-Public Use
  Company Number: DE-ASTRAZENECA-2012SE29445

PATIENT
  Age: 22788 Day
  Sex: Male
  Weight: 76.5 kg

DRUGS (1)
  1. ATACAND HCT [Suspect]
     Indication: HYPERTENSION
     Dosage: 8/12.5 MG ONCE/SINGLE ADMINISTRATION
     Route: 048
     Dates: start: 20120501, end: 20120501

REACTIONS (4)
  - NAUSEA [None]
  - CHEST DISCOMFORT [None]
  - DIZZINESS [None]
  - FEELING HOT [None]
